FAERS Safety Report 16795134 (Version 1)
Quarter: 2019Q3

REPORT INFORMATION
  Report Type: Spontaneous
  Country: US (occurrence: US)
  Receive Date: 20190722
  Receipt Date: 20190722
  Transmission Date: 20191005
  Serious: No
  Sender: FDA-Public Use
  Company Number: None

PATIENT
  Sex: Male

DRUGS (1)
  1. BEXAROTENE 75MG MYLAN [Suspect]
     Active Substance: BEXAROTENE
     Indication: ILL-DEFINED DISORDER
     Route: 048
     Dates: start: 20161021

REACTIONS (5)
  - Fatigue [None]
  - Full blood count decreased [None]
  - Asthenia [None]
  - Fall [None]
  - Condition aggravated [None]
